FAERS Safety Report 10089305 (Version 1)
Quarter: 2014Q2

REPORT INFORMATION
  Report Type: Spontaneous
  Country: US (occurrence: None)
  Receive Date: 20140418
  Receipt Date: 20140418
  Transmission Date: 20141212
  Serious: Yes (Other)
  Sender: FDA-Public Use
  Company Number: None

PATIENT
  Sex: Female
  Weight: 164 kg

DRUGS (1)
  1. LORAZEPAM [Suspect]
     Indication: ANXIETY
     Dates: start: 201303

REACTIONS (5)
  - Diarrhoea [None]
  - Headache [None]
  - Influenza like illness [None]
  - Coeliac disease [None]
  - Reaction to drug excipients [None]
